FAERS Safety Report 18881237 (Version 1)
Quarter: 2021Q1

REPORT INFORMATION
  Report Type: Spontaneous
  Country: US (occurrence: US)
  Receive Date: 20210211
  Receipt Date: 20210211
  Transmission Date: 20210420
  Serious: No
  Sender: FDA-Public Use
  Company Number: US-GLAXOSMITHKLINE-USCH2021005428

PATIENT
  Age: 25 Year
  Sex: Female

DRUGS (1)
  1. NICODERM CQ [Suspect]
     Active Substance: NICOTINE
     Indication: SMOKING CESSATION THERAPY
     Dates: start: 20210206, end: 20210207

REACTIONS (3)
  - Application site burn [Unknown]
  - Skin injury [Unknown]
  - Skin weeping [Unknown]

NARRATIVE: CASE EVENT DATE: 20210206
